FAERS Safety Report 6960714 (Version 2)
Quarter: 2013Q4

REPORT INFORMATION
  Report Type: Spontaneous
  Country: US (occurrence: None)
  Receive Date: 20090325
  Receipt Date: 20131002
  Transmission Date: 20140711
  Serious: Yes (Other)
  Sender: FDA-Public Use
  Company Number: 2009S1002460

PATIENT
  Age: 63 Year
  Sex: Female
  Weight: 70.76 kg

DRUGS (6)
  1. FLEET PHOSPHO-SODA [Suspect]
     Indication: COLONOSCOPY
     Dosage: PO
     Route: 048
     Dates: start: 200507, end: 200507
  2. LIPITOR (ATORVASTATIN CALCIUM) [Concomitant]
  3. HTCZ (HYDROCHLOROTHIAZIDE) [Concomitant]
  4. LISINOPRIL (LISINOPRIL) [Concomitant]
  5. MULTIVITAMINS (ERGOCALCIFEROL, ASCORBIC ACID, FOLIC ACID, THIAMINE HYDROCHLORIDE, RETINOL. RIBOFLAVIN, NICOTINAMIDE, PANTHENOL) [Concomitant]
  6. ASACOL (MESALAZINE) [Concomitant]

REACTIONS (3)
  - Toxicity to various agents [None]
  - Renal failure [None]
  - Hyperphosphataemia [None]
